FAERS Safety Report 14246696 (Version 2)
Quarter: 2017Q4

REPORT INFORMATION
  Report Type: Spontaneous
  Country: US (occurrence: US)
  Receive Date: 20171204
  Receipt Date: 20171213
  Transmission Date: 20180321
  Serious: No
  Sender: FDA-Public Use
  Company Number: US-PFIZER INC-2017513085

PATIENT
  Age: 81 Year
  Sex: Female

DRUGS (21)
  1. CALCIUM + D DUETTO [Concomitant]
     Indication: LUMBAR RADICULOPATHY
     Dosage: 1 TABLET, DAILY
     Route: 048
  2. BACLOFEN. [Concomitant]
     Active Substance: BACLOFEN
     Dosage: UNK
     Dates: start: 20170523
  3. GABAPENTIN. [Concomitant]
     Active Substance: GABAPENTIN
     Dosage: UNK
     Dates: start: 20170522
  4. TRAMADOL. [Concomitant]
     Active Substance: TRAMADOL
     Dosage: UNK
     Dates: start: 20170522
  5. SENNA [Concomitant]
     Active Substance: SENNA LEAF\SENNOSIDES\SENNOSIDES A AND B
     Indication: LUMBAR RADICULOPATHY
     Dosage: 8.6 MG, AS NEEDED[DAILY]
     Route: 048
  6. CALCIUM + D DUETTO [Concomitant]
     Indication: ESSENTIAL HYPERTENSION
  7. CYMBALTA [Suspect]
     Active Substance: DULOXETINE HYDROCHLORIDE
     Dosage: UNK
     Dates: start: 20170522
  8. POLYVINYL ALCOHOL [Concomitant]
     Active Substance: POLYVINYL ALCOHOL
     Dosage: 1.4 %, AS NEEDED[APPLY 1 DROP TO EACH EYE]
     Route: 047
  9. CLARITIN [Concomitant]
     Active Substance: LORATADINE
     Dosage: 10 MG, AS NEEDED[DAILY]
     Route: 048
  10. DILAUDID [Concomitant]
     Active Substance: HYDROMORPHONE HYDROCHLORIDE
     Dosage: TAKE 1-2 TABLETS (2-4 MG TOTAL) EVERY 4 HOURS AS NEEDED
     Route: 048
     Dates: start: 20171024, end: 20171107
  11. VITAMIN D [Concomitant]
     Active Substance: CHOLECALCIFEROL
     Indication: ESSENTIAL HYPERTENSION
  12. CORTISONE [Concomitant]
     Active Substance: CORTISONE\HYDROCORTISONE
     Dosage: UNK
     Dates: start: 20170522
  13. NORVASC [Concomitant]
     Active Substance: AMLODIPINE BESYLATE
     Dosage: 5 MG, DAILY
     Route: 048
     Dates: start: 20170524
  14. LYRICA [Suspect]
     Active Substance: PREGABALIN
     Dosage: 50 MG, TWICE A DAY
     Route: 048
     Dates: start: 20171023, end: 20171122
  15. SENNA [Concomitant]
     Active Substance: SENNA LEAF\SENNOSIDES\SENNOSIDES A AND B
     Indication: ESSENTIAL HYPERTENSION
  16. KRILL OIL [Concomitant]
     Active Substance: DIETARY SUPPLEMENT
     Dosage: 350 MG, DAILY
     Route: 048
  17. TYLENOL [Concomitant]
     Active Substance: ACETAMINOPHEN
     Dosage: 1000 MG, EVERY 6 HOURS
     Route: 048
     Dates: start: 20171015, end: 20171114
  18. LYRICA [Suspect]
     Active Substance: PREGABALIN
     Dosage: UNK
     Dates: start: 20170522
  19. LYRICA [Suspect]
     Active Substance: PREGABALIN
     Dosage: 50 MG, TWICE A DAY
     Route: 048
     Dates: start: 20171127
  20. ONE-A-DAY [Concomitant]
     Active Substance: VITAMINS
     Dosage: 1 TABLET, DAILY
     Route: 048
  21. VITAMIN D [Concomitant]
     Active Substance: CHOLECALCIFEROL
     Indication: LUMBAR RADICULOPATHY
     Dosage: 2000 IU, DAILY
     Route: 048

REACTIONS (5)
  - Nausea [Unknown]
  - Drug hypersensitivity [Unknown]
  - Dizziness [Unknown]
  - Somnolence [Unknown]
  - Asthenia [Unknown]

NARRATIVE: CASE EVENT DATE: 20170522
